FAERS Safety Report 10021383 (Version 4)
Quarter: 2015Q1

REPORT INFORMATION
  Report Type: Spontaneous
  Country: GB (occurrence: None)
  Receive Date: 20140313
  Receipt Date: 20150303
  Transmission Date: 20150720
  Serious: Yes (Hospitalization)
  Sender: FDA-Public Use
  Company Number: KAD201403-000296

PATIENT
  Sex: Female

DRUGS (2)
  1. RIBAVIRIN (RIBAVIRIN) [Suspect]
     Active Substance: RIBAVIRIN
  2. SOFOSBUVIR [Suspect]
     Active Substance: SOFOSBUVIR

REACTIONS (4)
  - Pregnancy on oral contraceptive [None]
  - Pregnancy with contraceptive device [None]
  - Exposure via partner [None]
  - Abortion spontaneous [None]

NARRATIVE: CASE EVENT DATE: 20140206
